FAERS Safety Report 11886667 (Version 1)
Quarter: 2016Q1

REPORT INFORMATION
  Report Type: Report from Study
  Country: JP (occurrence: JP)
  Receive Date: 20160104
  Receipt Date: 20160104
  Transmission Date: 20160526
  Serious: Yes (Hospitalization)
  Sender: FDA-Public Use
  Company Number: JP-EISAI MEDICAL RESEARCH-EC-2015-013189

PATIENT
  Age: 53 Year
  Sex: Female
  Weight: 43 kg

DRUGS (7)
  1. PROTECADIN [Concomitant]
     Active Substance: LAFUTIDINE
  2. PRIMPERAN [Concomitant]
     Active Substance: METOCLOPRAMIDE HYDROCHLORIDE
  3. HALAVEN [Suspect]
     Active Substance: ERIBULIN MESYLATE
     Route: 041
     Dates: start: 20150420, end: 20150511
  4. HALAVEN [Suspect]
     Active Substance: ERIBULIN MESYLATE
     Indication: BREAST CANCER RECURRENT
     Route: 041
     Dates: start: 20150126, end: 20150216
  5. HALAVEN [Suspect]
     Active Substance: ERIBULIN MESYLATE
     Route: 041
     Dates: start: 20150309, end: 20150330
  6. HYSRON-H [Concomitant]
     Active Substance: MEDROXYPROGESTERONE
  7. PROMAC [Concomitant]
     Active Substance: NITROFURANTOIN

REACTIONS (1)
  - Haemoglobin decreased [Recovered/Resolved]

NARRATIVE: CASE EVENT DATE: 20150202
